FAERS Safety Report 24322237 (Version 5)
Quarter: 2025Q4

REPORT INFORMATION
  Report Type: Spontaneous
  Country: CA (occurrence: CA)
  Receive Date: 20240916
  Receipt Date: 20251214
  Transmission Date: 20260118
  Serious: Yes (Hospitalization, Other)
  Sender: BOEHRINGER INGELHEIM
  Company Number: CA-BoehringerIngelheim-2024-BI-050974

PATIENT
  Age: 52 Year
  Sex: Female

DRUGS (36)
  1. APTIVUS [Suspect]
     Active Substance: TIPRANAVIR
     Indication: HIV infection
  2. DIAZEPAM [Suspect]
     Active Substance: DIAZEPAM
     Indication: HIV infection
  3. DIAZEPAM [Suspect]
     Active Substance: DIAZEPAM
     Indication: Depression
  4. DIAZEPAM [Suspect]
     Active Substance: DIAZEPAM
  5. ACETAMINOPHEN [Suspect]
     Active Substance: ACETAMINOPHEN
     Indication: Product used for unknown indication
  6. CLONAZEPAM [Suspect]
     Active Substance: CLONAZEPAM
     Indication: Hypomania
  7. CLONAZEPAM [Suspect]
     Active Substance: CLONAZEPAM
  8. TEGRETOL [Suspect]
     Active Substance: CARBAMAZEPINE
     Indication: Hypomania
  9. NYSTATIN [Suspect]
     Active Substance: NYSTATIN
     Indication: Pain in extremity
  10. RIVOTRIL [Suspect]
     Active Substance: CLONAZEPAM
     Indication: Hypomania
  11. DIVALPROEX SODIUM [Suspect]
     Active Substance: DIVALPROEX SODIUM
     Indication: Product used for unknown indication
  12. DIVALPROEX SODIUM [Suspect]
     Active Substance: DIVALPROEX SODIUM
  13. QUETIAPINE FUMARATE [Suspect]
     Active Substance: QUETIAPINE FUMARATE
     Indication: Psychotic disorder
  14. OLANZAPINE [Suspect]
     Active Substance: OLANZAPINE
     Indication: Product used for unknown indication
  15. OLANZAPINE [Suspect]
     Active Substance: OLANZAPINE
  16. RISPERIDONE [Suspect]
     Active Substance: RISPERIDONE
     Indication: Psychotic disorder
  17. TRAZODONE [Suspect]
     Active Substance: TRAZODONE HYDROCHLORIDE
     Indication: Depression
  18. PROCYCLIDINE HYDROCHLORIDE [Suspect]
     Active Substance: PROCYCLIDINE HYDROCHLORIDE
     Indication: Musculoskeletal stiffness
  19. PROCYCLIDINE HYDROCHLORIDE [Suspect]
     Active Substance: PROCYCLIDINE HYDROCHLORIDE
     Indication: Prophylaxis
  20. LAMIVUDINE [Concomitant]
     Active Substance: LAMIVUDINE
     Indication: Product used for unknown indication
  21. CHLORAL HYDRATE [Concomitant]
     Active Substance: CHLORAL HYDRATE
     Indication: Product used for unknown indication
  22. BISACODYL [Concomitant]
     Active Substance: BISACODYL
     Indication: Product used for unknown indication
  23. CALCIUM CARBONATE [Concomitant]
     Active Substance: CALCIUM CARBONATE
     Indication: Product used for unknown indication
  24. KALETRA [Concomitant]
     Active Substance: LOPINAVIR\RITONAVIR
     Indication: Product used for unknown indication
  25. LACTULOSE [Concomitant]
     Active Substance: LACTULOSE
     Indication: Product used for unknown indication
  26. LACTULOSE [Concomitant]
     Active Substance: LACTULOSE
  27. ENFUVIRTIDE [Concomitant]
     Active Substance: ENFUVIRTIDE
     Indication: Product used for unknown indication
  28. SERTRALINE [Concomitant]
     Active Substance: SERTRALINE HYDROCHLORIDE
     Indication: Product used for unknown indication
  29. LITHIUM [Concomitant]
     Active Substance: LITHIUM
     Indication: Product used for unknown indication
  30. ABACAVIR SULFATE\LAMIVUDINE [Concomitant]
     Active Substance: ABACAVIR SULFATE\LAMIVUDINE
     Indication: Product used for unknown indication
  31. ATOVAQUONE\PROGUANIL [Concomitant]
     Active Substance: ATOVAQUONE\PROGUANIL
     Indication: Product used for unknown indication
  32. IMODIUM [Concomitant]
     Active Substance: LOPERAMIDE HYDROCHLORIDE
     Indication: Product used for unknown indication
  33. phenylephrine hydrochloride/paracetamol [Concomitant]
     Indication: Product used for unknown indication
  34. ATOVAQUONE W/PROGUANIL [Concomitant]
     Indication: Product used for unknown indication
  35. Enfuviritide [Concomitant]
     Indication: Product used for unknown indication
  36. LAMIVUDINE [Concomitant]
     Active Substance: LAMIVUDINE
     Indication: Product used for unknown indication

REACTIONS (8)
  - Cholelithiasis [Unknown]
  - Nausea [Unknown]
  - Pneumonia [Unknown]
  - Schizophrenia [Unknown]
  - Vomiting [Unknown]
  - Pain in extremity [Unknown]
  - Off label use [Unknown]
  - Product use in unapproved indication [Unknown]
